FAERS Safety Report 16570080 (Version 1)
Quarter: 2019Q3

REPORT INFORMATION
  Report Type: Spontaneous
  Country: DE (occurrence: DE)
  Receive Date: 20190715
  Receipt Date: 20190715
  Transmission Date: 20191004
  Serious: Yes (Other)
  Sender: FDA-Public Use
  Company Number: DE-ACCORD-137972

PATIENT
  Age: 93 Year
  Sex: Male

DRUGS (8)
  1. LISINOPRIL. [Suspect]
     Active Substance: LISINOPRIL
     Indication: PRODUCT USED FOR UNKNOWN INDICATION
     Dosage: 20 MG, 1-0-0, TABLET
     Route: 048
  2. DECODERM [Concomitant]
     Active Substance: FLUPREDNIDENE ACETATE
     Dosage: 1-0-0, OINTMENT (CREME)
     Route: 003
  3. ASPIRIN. [Concomitant]
     Active Substance: ASPIRIN
     Dosage: 100 MG, 1-0-0, TABLET
     Route: 048
  4. HYDROCHLOROTHIAZIDE. [Suspect]
     Active Substance: HYDROCHLOROTHIAZIDE
     Indication: PRODUCT USED FOR UNKNOWN INDICATION
     Dosage: 12.5 MG, 1-0-0, TABLET
     Route: 048
  5. MELPERONE [Suspect]
     Active Substance: MELPERONE
     Indication: PRODUCT USED FOR UNKNOWN INDICATION
     Dosage: 5 ML, B.B., SAFT
     Route: 048
  6. TRIAMCINOLONE ABZ [Concomitant]
     Dosage: 1-0-0, OINTMENT, STRENGTH: 0.1% CREAM
     Route: 003
  7. AMLODIPINE [Suspect]
     Active Substance: AMLODIPINE BESYLATE
     Indication: PRODUCT USED FOR UNKNOWN INDICATION
     Dosage: 5 MG, 1-0-0, TABLET
     Route: 048
  8. NOVALGIN [Concomitant]
     Dosage: 500 MG, B.B., TABLET
     Route: 048

REACTIONS (4)
  - Dizziness [Recovered/Resolved]
  - Syncope [Recovered/Resolved]
  - Brain contusion [Recovered/Resolved]
  - Fall [Unknown]
